FAERS Safety Report 7663455-5 (Version None)
Quarter: 2011Q3

REPORT INFORMATION
  Report Type: 
  Country: None (occurrence: None)
  Receive Date: 20110805
  Receipt Date: 20100819
  Transmission Date: 20111222
  Serious: No
  Sender: FDA-Public Use
  Company Number: US-ABBOTT-10P-163-0659851-00

PATIENT
  Sex: Female
  Weight: 96.248 kg

DRUGS (4)
  1. NIASPAN [Suspect]
     Indication: LOW DENSITY LIPOPROTEIN INCREASED
     Route: 048
  2. NIASPAN [Suspect]
     Route: 048
     Dates: start: 20100701
  3. NIASPAN [Suspect]
     Route: 048
     Dates: start: 20100401, end: 20100701
  4. NIASPAN [Suspect]
     Route: 048
     Dates: start: 20100701, end: 20100701

REACTIONS (2)
  - BLOOD GLUCOSE INCREASED [None]
  - FLUSHING [None]
